FAERS Safety Report 24590387 (Version 1)
Quarter: 2024Q4

REPORT INFORMATION
  Report Type: Spontaneous
  Country: US (occurrence: None)
  Receive Date: 20241107
  Receipt Date: 20241107
  Transmission Date: 20250115
  Serious: Yes (Other)
  Sender: Public
  Company Number: None

PATIENT
  Age: 52 Year
  Sex: Female
  Weight: 57.6 kg

DRUGS (14)
  1. MUCUS RELIEF DM [Suspect]
     Active Substance: DEXTROMETHORPHAN HYDROBROMIDE\GUAIFENESIN
     Indication: Respiratory tract congestion
     Dosage: OTHER QUANTITY : 1 TABLET(S);?FREQUENCY : EVERY 12 HOURS;?
     Route: 048
     Dates: start: 20241105, end: 20241105
  2. ALBUTEROL [Suspect]
     Active Substance: ALBUTEROL
  3. HYDROCHLOROTHIAZIDE 12.5MG-2/DA [Concomitant]
  4. ESTRODIAL [Concomitant]
  5. VITAMIN D3 [Concomitant]
     Active Substance: CHOLECALCIFEROL
  6. JWH-018 [Concomitant]
     Active Substance: JWH-018
  7. B12 [Concomitant]
  8. ZINC [Concomitant]
     Active Substance: ZINC
  9. C+ ROSE HIPS [Concomitant]
  10. BENADRYL [Concomitant]
  11. MELATONIN [Concomitant]
     Active Substance: MELATONIN
  12. BIOTIN [Concomitant]
     Active Substance: BIOTIN
  13. WOMEN^S + MULTIVITAMIN [Concomitant]
  14. EMGENC-C [Concomitant]

REACTIONS (17)
  - Asthenia [None]
  - Tremor [None]
  - Feeling abnormal [None]
  - Paraesthesia [None]
  - Paraesthesia oral [None]
  - Paraesthesia oral [None]
  - Paraesthesia oral [None]
  - Paraesthesia [None]
  - Panic reaction [None]
  - Dyspnoea [None]
  - Vertigo [None]
  - Blood pressure increased [None]
  - Headache [None]
  - Feeling hot [None]
  - Flushing [None]
  - Hypoaesthesia [None]
  - Musculoskeletal disorder [None]

NARRATIVE: CASE EVENT DATE: 20241105
